FAERS Safety Report 9708133 (Version 3)
Quarter: 2013Q4

REPORT INFORMATION
  Report Type: Spontaneous
  Country: IT (occurrence: IT)
  Receive Date: 20131125
  Receipt Date: 20131226
  Transmission Date: 20140711
  Serious: Yes (Hospitalization)
  Sender: FDA-Public Use
  Company Number: IT-TEVA-444917ISR

PATIENT
  Age: 79 Year
  Sex: Female

DRUGS (1)
  1. TICLOPIDINA CLORIDRATO [Suspect]
     Dates: start: 20100101, end: 20131008

REACTIONS (1)
  - Subdural haematoma [Recovering/Resolving]
